FAERS Safety Report 20218692 (Version 1)
Quarter: 2021Q4

REPORT INFORMATION
  Report Type: Spontaneous
  Country: CA (occurrence: CA)
  Receive Date: 20211222
  Receipt Date: 20211222
  Transmission Date: 20220303
  Serious: Yes (Hospitalization)
  Sender: FDA-Public Use
  Company Number: CA-TEVA-2021-CA-1990196

PATIENT
  Age: 72 Year
  Sex: Male
  Weight: 115 kg

DRUGS (16)
  1. FLUCONAZOLE [Interacting]
     Active Substance: FLUCONAZOLE
     Indication: Candida infection
     Dosage: 900 MILLIGRAM DAILY;
     Route: 048
  2. PHENYTOIN [Interacting]
     Active Substance: PHENYTOIN
     Indication: Product used for unknown indication
     Route: 065
  3. ACETAMINOPHEN [Concomitant]
     Active Substance: ACETAMINOPHEN
  4. ADVAIR HFA [Concomitant]
     Active Substance: FLUTICASONE PROPIONATE\SALMETEROL XINAFOATE
  5. ATROVENT [Concomitant]
     Active Substance: IPRATROPIUM BROMIDE
  6. CAPTOPRIL [Concomitant]
     Active Substance: CAPTOPRIL
  7. CYANOCOBALAMIN [Concomitant]
     Active Substance: CYANOCOBALAMIN
  8. DIAZEPAM [Concomitant]
     Active Substance: DIAZEPAM
  9. DIGOXIN [Concomitant]
     Active Substance: DIGOXIN
  10. DILTIAZEM [Concomitant]
     Active Substance: DILTIAZEM
  11. DIOVOL PLUS[ALUMINIUM HYDROXIDE;MAGNESIUM HYDROXIDE;SIMETICONE] [Concomitant]
  12. FOLIC ACID [Concomitant]
     Active Substance: FOLIC ACID
  13. HEPARIN SODIUM [Concomitant]
     Active Substance: HEPARIN SODIUM
  14. LASIX [Concomitant]
     Active Substance: FUROSEMIDE
  15. METOPROLOL [Concomitant]
     Active Substance: METOPROLOL
  16. NICOTINE [Concomitant]
     Active Substance: NICOTINE

REACTIONS (1)
  - Drug interaction [Recovered/Resolved]
